FAERS Safety Report 9312802 (Version 2)
Quarter: 2013Q3

REPORT INFORMATION
  Report Type: Report from Study
  Country: JP (occurrence: JP)
  Receive Date: 20130528
  Receipt Date: 20130827
  Transmission Date: 20140515
  Serious: Yes (Hospitalization)
  Sender: FDA-Public Use
  Company Number: JP-ABBOTT-13P-087-1094243-00

PATIENT
  Age: 31 Year
  Sex: Male
  Weight: 60 kg

DRUGS (5)
  1. HUMIRA [Suspect]
     Indication: CROHN^S DISEASE
     Route: 058
     Dates: start: 20130409, end: 20130409
  2. HUMIRA [Suspect]
     Dates: start: 20130603, end: 20130603
  3. HUMIRA [Suspect]
     Dates: end: 20130508
  4. MESALAZINE [Concomitant]
     Indication: CROHN^S DISEASE
     Route: 048
     Dates: start: 20130409, end: 20130508
  5. PARENTERAL NUTRITION [Concomitant]
     Indication: ENTERAL NUTRITION
     Route: 048
     Dates: start: 20130405

REACTIONS (4)
  - Blood creatine phosphokinase increased [Recovered/Resolved]
  - Convulsion [Recovering/Resolving]
  - Malaise [Unknown]
  - Myoglobin urine present [Unknown]
